FAERS Safety Report 6244291-3 (Version None)
Quarter: 2009Q2

REPORT INFORMATION
  Report Type: 
  Country: None (occurrence: None)
  Receive Date: 20090625
  Receipt Date: 20090616
  Transmission Date: 20091009
  Serious: Yes (Hospitalization)
  Sender: FDA-Public Use
  Company Number: JP-ASTRAZENECA-2009SE03020

PATIENT
  Age: 87 Year
  Sex: Female

DRUGS (6)
  1. ECARD COMBINATION TABLETS HD [Suspect]
     Indication: HYPERTENSION
     Route: 048
     Dates: start: 20090427, end: 20090603
  2. SIGMART [Concomitant]
     Route: 065
  3. GASMOTIN [Concomitant]
     Route: 048
  4. EVISTA [Concomitant]
     Route: 048
  5. ALFAROL [Concomitant]
     Route: 048
  6. MARZULENE [Concomitant]
     Route: 048

REACTIONS (1)
  - TOXIC SKIN ERUPTION [None]
